FAERS Safety Report 4269556-6 (Version None)
Quarter: 2004Q1

REPORT INFORMATION
  Report Type: 
  Country: None (occurrence: None)
  Receive Date: 20040109
  Receipt Date: 20040105
  Transmission Date: 20041129
  Serious: Yes (Other)
  Sender: FDA-Public Use
  Company Number: PHRM2004FR00440

PATIENT
  Age: 83 Year
  Sex: Male

DRUGS (1)
  1. ICAZ LP (ISRADIPINE) SLOW ICAZ LP(ISRADIPINE) SLOW RELEASE CAPSULES [Suspect]
     Dosage: ORAL
     Route: 048

REACTIONS (1)
  - CUTANEOUS LUPUS ERYTHEMATOSUS [None]
